FAERS Safety Report 9829039 (Version 4)
Quarter: 2014Q4

REPORT INFORMATION
  Report Type: Spontaneous
  Country: JP (occurrence: JP)
  Receive Date: 20140118
  Receipt Date: 20141012
  Transmission Date: 20150529
  Serious: Yes (Other)
  Sender: FDA-Public Use
  Company Number: JP-009507513-1312JPN006950

PATIENT
  Age: 70 Year
  Sex: Male
  Weight: 51 kg

DRUGS (8)
  1. BUTYLSCOPOLAMINE BROMIDE [Suspect]
     Active Substance: BUTYLSCOPOLAMINE BROMIDE
     Indication: INTESTINAL ANASTOMOSIS
     Dosage: 20 MG, DIVIDED DOSE FREQUENCY UNKNOWN
     Route: 042
  2. ESLAX INTRAVENOUS 25MG/2.5ML [Suspect]
     Active Substance: ROCURONIUM BROMIDE
     Indication: MAINTENANCE OF ANAESTHESIA
  3. FENTANYL. [Suspect]
     Active Substance: FENTANYL
     Indication: MAINTENANCE OF ANAESTHESIA
     Dosage: 125 MICROGRAM/HOUR, DIVIDED DOSE FREQUENCY UNKNOWN
     Route: 008
     Dates: start: 20131203, end: 20131203
  4. BRIDION [Suspect]
     Active Substance: SUGAMMADEX
     Indication: NEUROMUSCULAR BLOCKADE REVERSAL
     Dosage: 200 MG, QD
     Route: 042
     Dates: start: 20131203, end: 20131203
  5. ESLAX INTRAVENOUS 25MG/2.5ML [Suspect]
     Active Substance: ROCURONIUM BROMIDE
     Indication: NEUROMUSCULAR BLOCKING THERAPY
     Dosage: 15493 MG, QD
     Route: 042
     Dates: start: 20131203, end: 20131203
  6. ANAPEINE [Suspect]
     Active Substance: ROPIVACAINE HYDROCHLORIDE
     Indication: PROCEDURAL PAIN
     Dosage: 6 MG/HOUR, DIVIDED DOSE FREQUENCY UNKNOWN
     Route: 008
     Dates: start: 20131203, end: 20131203
  7. SUPRANE [Suspect]
     Active Substance: DESFLURANE
     Indication: MAINTENANCE OF ANAESTHESIA
     Dosage: 2-4%, DIVIDED DOSE FREQUENCY UNKNOWN
     Route: 055
     Dates: start: 20131203, end: 20131203
  8. ULTIVA [Suspect]
     Active Substance: REMIFENTANIL HYDROCHLORIDE
     Indication: MAINTENANCE OF ANAESTHESIA
     Dosage: 0.1-0.4 MICROGRAM/KG/MIN, DIVIDED DOSE FREQUENCY UNKNOWN
     Route: 042
     Dates: start: 20131203, end: 20131203

REACTIONS (4)
  - Cardiac arrest [Recovered/Resolved]
  - Ventricular fibrillation [Recovered/Resolved]
  - Prinzmetal angina [Unknown]
  - Ventricular tachycardia [Recovered/Resolved]

NARRATIVE: CASE EVENT DATE: 20131203
